FAERS Safety Report 15006702 (Version 2)
Quarter: 2018Q2

REPORT INFORMATION
  Report Type: Report from Study
  Country: US (occurrence: US)
  Receive Date: 20180613
  Receipt Date: 20180614
  Transmission Date: 20180711
  Serious: No
  Sender: FDA-Public Use
  Company Number: US-US WORLDMEDS, LLC-USW201711-001677

PATIENT
  Age: 69 Year
  Sex: Male
  Weight: 91.62 kg

DRUGS (18)
  1. DICLOFENAC [Concomitant]
     Active Substance: DICLOFENAC
  2. LEVODOPA [Concomitant]
     Active Substance: LEVODOPA
     Dates: start: 20171122
  3. CYMBALTA [Concomitant]
     Active Substance: DULOXETINE HYDROCHLORIDE
  4. VITAMIN D [Concomitant]
     Active Substance: CHOLECALCIFEROL
  5. KLONOPIN [Concomitant]
     Active Substance: CLONAZEPAM
  6. APOKYN [Suspect]
     Active Substance: APOMORPHINE HYDROCHLORIDE
     Indication: PARKINSON^S DISEASE
     Dates: start: 20171122
  7. AZILECT [Concomitant]
     Active Substance: RASAGILINE MESYLATE
  8. COLACE [Concomitant]
     Active Substance: DOCUSATE SODIUM
  9. CARBIDOPA LEVODOPA [Concomitant]
     Active Substance: CARBIDOPA\LEVODOPA
  10. GLUCOPHAGE [Concomitant]
     Active Substance: METFORMIN HYDROCHLORIDE
  11. FLOMAX [Concomitant]
     Active Substance: TAMSULOSIN HYDROCHLORIDE
  12. NOVOLOG [Concomitant]
     Active Substance: INSULIN ASPART
  13. MAGNESIUM [Concomitant]
     Active Substance: MAGNESIUM
  14. CARBIDOPA LEVODOPA [Concomitant]
     Active Substance: CARBIDOPA\LEVODOPA
  15. LYRICA [Concomitant]
     Active Substance: PREGABALIN
  16. TIGAN [Concomitant]
     Active Substance: TRIMETHOBENZAMIDE HYDROCHLORIDE
     Indication: VOMITING
     Dates: start: 20171119
  17. ACTOS [Concomitant]
     Active Substance: PIOGLITAZONE HYDROCHLORIDE
  18. LANTUS [Concomitant]
     Active Substance: INSULIN GLARGINE

REACTIONS (4)
  - Blood pressure decreased [Recovered/Resolved]
  - Drug ineffective [Unknown]
  - Somnolence [Not Recovered/Not Resolved]
  - Fall [Recovered/Resolved]

NARRATIVE: CASE EVENT DATE: 20171122
